FAERS Safety Report 11130413 (Version 2)
Quarter: 2015Q3

REPORT INFORMATION
  Report Type: Spontaneous
  Country: JP (occurrence: JP)
  Receive Date: 20150522
  Receipt Date: 20150812
  Transmission Date: 20151125
  Serious: Yes (Other)
  Sender: FDA-Public Use
  Company Number: JP-ROCHE-1520514

PATIENT
  Age: 56 Year
  Sex: Male
  Weight: 90 kg

DRUGS (5)
  1. COPEGUS [Suspect]
     Active Substance: RIBAVIRIN
     Indication: CHRONIC HEPATITIS C
     Dosage: DOSAGE IS UNCERTAIN.
     Route: 048
     Dates: start: 20120207, end: 20120321
  2. PEGASYS [Suspect]
     Active Substance: PEGINTERFERON ALFA-2A
     Indication: CHRONIC HEPATITIS C
     Dosage: DOSAGE IS UNCERTAIN.
     Route: 058
     Dates: start: 20120207, end: 20120313
  3. COPEGUS [Suspect]
     Active Substance: RIBAVIRIN
     Route: 048
     Dates: start: 20120322, end: 20120403
  4. LOXONIN [Concomitant]
     Active Substance: LOXOPROFEN SODIUM
     Indication: PYREXIA
     Dosage: SINGLE USE AT THERMACOGENESIS OF 38 DEGREE CELCIUS OR MORE
     Route: 048
     Dates: start: 20120207, end: 20120213
  5. CYTOTEC [Concomitant]
     Active Substance: MISOPROSTOL
     Indication: PYREXIA
     Dosage: SINGLE USE AT 38 THERMACOGENESISES
     Route: 048
     Dates: start: 20120207, end: 20120213

REACTIONS (2)
  - Rash pruritic [Unknown]
  - Macular detachment [Recovered/Resolved]

NARRATIVE: CASE EVENT DATE: 20120313
